FAERS Safety Report 14037470 (Version 3)
Quarter: 2017Q4

REPORT INFORMATION
  Report Type: Report from Study
  Country: CA (occurrence: CA)
  Receive Date: 20171004
  Receipt Date: 20171226
  Transmission Date: 20180321
  Serious: Yes (Disabling)
  Sender: FDA-Public Use
  Company Number: CA-AMGEN-CANSL2017148370

PATIENT
  Age: 56 Year
  Sex: Male
  Weight: 122 kg

DRUGS (4)
  1. KYPROLIS [Suspect]
     Active Substance: CARFILZOMIB
     Indication: PLASMA CELL MYELOMA
     Dosage: 123 MG, POC ON DAY 1, 2, 8, 9, 15 AND 16
     Route: 065
     Dates: start: 20170412
  2. KYPROLIS [Suspect]
     Active Substance: CARFILZOMIB
     Dosage: 123 MG, POC ON DAY 1, 2, 8, 9, 15 AND 16
     Route: 065
  3. KYPROLIS [Suspect]
     Active Substance: CARFILZOMIB
     Dosage: 123 MG, POC ON DAY 1, 2, 8, 9, 15 AND 16
     Route: 065
  4. KYPROLIS [Suspect]
     Active Substance: CARFILZOMIB
     Dosage: 123 MG, POC ON DAY 1, 2, 8, 9, 15 AND 16
     Route: 065

REACTIONS (5)
  - Somnolence [Unknown]
  - Dyspnoea [Not Recovered/Not Resolved]
  - Nasopharyngitis [Not Recovered/Not Resolved]
  - Fatigue [Not Recovered/Not Resolved]
  - Arthralgia [Not Recovered/Not Resolved]

NARRATIVE: CASE EVENT DATE: 2017
